FAERS Safety Report 5509770-2 (Version None)
Quarter: 2007Q4

REPORT INFORMATION
  Report Type: 
  Country: None (occurrence: None)
  Receive Date: 20071107
  Receipt Date: 20071107
  Transmission Date: 20080405
  Serious: Yes (Hospitalization)
  Sender: FDA-Public Use
  Company Number: None

PATIENT
  Age: 69 Year
  Sex: Male

DRUGS (1)
  1. MORPHINE [Suspect]
     Indication: PAIN
     Dosage: 2MG OTHER SQ
     Route: 058
     Dates: start: 20070912, end: 20070914

REACTIONS (2)
  - CONFUSIONAL STATE [None]
  - FACIAL PALSY [None]
